FAERS Safety Report 6642147-5 (Version None)
Quarter: 2010Q1

REPORT INFORMATION
  Report Type: 
  Country: None (occurrence: None)
  Receive Date: 20100319
  Receipt Date: 20100308
  Transmission Date: 20100710
  Serious: Yes (Hospitalization)
  Sender: FDA-Public Use
  Company Number: ES-BRISTOL-MYERS SQUIBB COMPANY-15008436

PATIENT
  Age: 48 Year
  Sex: Male

DRUGS (7)
  1. CARBIDOPA-LEVODOPA [Suspect]
     Indication: PARKINSON'S DISEASE
     Dosage: 1 DF = 250/1000MG/DAY.
  2. CARBIDOPA-LEVODOPA [Suspect]
     Dosage: 1 DF = 250/1000MG/DAY.
  3. AMANTADINE HCL [Suspect]
     Indication: PARKINSON'S DISEASE
     Dosage: ALSO TAKEN AS 200MG/DAY.
  4. ENTACAPONE [Suspect]
     Indication: PARKINSON'S DISEASE
  5. ROPINIROLE [Suspect]
     Indication: PARKINSON'S DISEASE
  6. SELEGILINE HCL [Suspect]
     Indication: PARKINSON'S DISEASE
     Dosage: ALSO TAKEN AS 20MG/DAY.
  7. QUETIAPINE [Suspect]

REACTIONS (4)
  - DRUG ABUSE [None]
  - HYPERSEXUALITY [None]
  - PATHOLOGICAL GAMBLING [None]
  - PSYCHOTIC DISORDER [None]
